FAERS Safety Report 20565354 (Version 1)
Quarter: 2022Q1

REPORT INFORMATION
  Report Type: Spontaneous
  Country: US (occurrence: None)
  Receive Date: 20220307
  Receipt Date: 20220307
  Transmission Date: 20220423
  Serious: Yes (Hospitalization)
  Sender: FDA-Public Use
  Company Number: None

PATIENT
  Age: 70 Year
  Sex: Male
  Weight: 80 kg

DRUGS (2)
  1. CYCLOPHOSPHAMIDE [Suspect]
     Active Substance: CYCLOPHOSPHAMIDE
     Indication: Diffuse large B-cell lymphoma
     Dosage: FREQUENCY : 3X?
     Route: 042
     Dates: start: 20220303
  2. FLUDARABINE [Suspect]
     Active Substance: FLUDARABINE PHOSPHATE
     Dosage: FREQUENCY : 3X ?
     Route: 042
     Dates: start: 20220303

REACTIONS (2)
  - Loss of consciousness [None]
  - Cancer pain [None]

NARRATIVE: CASE EVENT DATE: 20220304
